FAERS Safety Report 5247446-X (Version None)
Quarter: 2007Q1

REPORT INFORMATION
  Report Type: 
  Country: None (occurrence: None)
  Receive Date: 20070227
  Receipt Date: 20070220
  Transmission Date: 20070707
  Serious: Yes (Hospitalization)
  Sender: FDA-Public Use
  Company Number: DE-BRISTOL-MYERS SQUIBB COMPANY-13684410

PATIENT
  Age: 31 Year
  Sex: Female
  Weight: 58 kg

DRUGS (6)
  1. CYCLOPHOSPHAMIDE [Suspect]
     Indication: BREAST CANCER
     Dates: start: 20070105
  2. DOXORUBICIN HCL [Suspect]
     Indication: BREAST CANCER
     Dates: start: 20070105
  3. LAFOL [Concomitant]
     Dates: start: 20061222, end: 20070105
  4. DEXAMETHASONE SODIUM PHOSPHATE [Concomitant]
     Dates: start: 20070105
  5. APREPITANT [Concomitant]
     Dates: start: 20070105
  6. GRANISETRON [Concomitant]
     Dates: start: 20070105

REACTIONS (1)
  - APPENDICITIS [None]
